FAERS Safety Report 8367067-X (Version None)
Quarter: 2012Q2

REPORT INFORMATION
  Report Type: 
  Country: None (occurrence: None)
  Receive Date: 20120517
  Receipt Date: 20120511
  Transmission Date: 20120825
  Serious: Yes (Death, Hospitalization)
  Sender: FDA-Public Use
  Company Number: US-ELI_LILLY_AND_COMPANY-US201203000994

PATIENT
  Sex: Female

DRUGS (2)
  1. GEMZAR [Suspect]
     Indication: BILE DUCT CANCER
     Dosage: UNK
     Dates: start: 20111110
  2. ANTIBIOTICS [Concomitant]

REACTIONS (3)
  - JAUNDICE [None]
  - MENTAL STATUS CHANGES [None]
  - NEOPLASM PROGRESSION [None]
